FAERS Safety Report 10141748 (Version 2)
Quarter: 2014Q2

REPORT INFORMATION
  Report Type: Spontaneous
  Country: GB (occurrence: GB)
  Receive Date: 20140429
  Receipt Date: 20140529
  Transmission Date: 20141212
  Serious: Yes (Hospitalization)
  Sender: FDA-Public Use
  Company Number: GB-ACTAVIS-2014-08304

PATIENT
  Age: 41 Year
  Sex: Female

DRUGS (21)
  1. DOCETAXEL (UNKNOWN) [Suspect]
     Indication: HER-2 POSITIVE BREAST CANCER
     Dosage: UNK, CYCLICAL
     Route: 065
     Dates: start: 20140207
  2. ABRAXANE                           /01116004/ [Suspect]
     Indication: HER-2 POSITIVE BREAST CANCER
     Dosage: UNK, CYCLICAL
     Route: 065
     Dates: start: 20140207
  3. ASACOL [Concomitant]
     Indication: PRODUCT USED FOR UNKNOWN INDICATION
     Dosage: UNK, 3 TIMES PER DAY
     Route: 065
     Dates: start: 20131115
  4. CALCEOS [Concomitant]
     Indication: HYPOCALCAEMIA
     Dosage: DOSE; 500 MG+400 U
     Route: 065
     Dates: start: 20130927
  5. CALCICHEW [Concomitant]
     Indication: PRODUCT USED FOR UNKNOWN INDICATION
     Dosage: 500 MG, DAILY
     Route: 065
     Dates: start: 20130927
  6. GLUCOSAMINE + CHONDROITIN          /01625901/ [Concomitant]
     Indication: PRODUCT USED FOR UNKNOWN INDICATION
     Dosage: 500 MG, UNK
     Route: 065
     Dates: start: 20100101
  7. HYDROCORTISONE [Concomitant]
     Indication: PRODUCT USED FOR UNKNOWN INDICATION
     Dosage: 100 MG, DAILY
     Route: 065
     Dates: start: 20131004, end: 20131004
  8. HYDROCORTISONE [Concomitant]
     Dosage: UNK
     Route: 065
     Dates: start: 20131227
  9. IBUPROFEN [Concomitant]
     Indication: PRODUCT USED FOR UNKNOWN INDICATION
     Dosage: UNK; TOTAL DAILY DOSE; 200-600 MG
     Route: 065
     Dates: start: 201305, end: 20140124
  10. LYSINE [Concomitant]
     Indication: PRODUCT USED FOR UNKNOWN INDICATION
     Dosage: 1000 MG, DAILY
     Route: 065
     Dates: start: 20130930, end: 20131011
  11. OMEPRAZOLE [Concomitant]
     Indication: PRODUCT USED FOR UNKNOWN INDICATION
     Dosage: 20 MG, DAILY
     Route: 065
     Dates: start: 20140117
  12. PARACETAMOL [Concomitant]
     Indication: PRODUCT USED FOR UNKNOWN INDICATION
     Dosage: 1 G, DAILY
     Route: 065
     Dates: start: 20130925, end: 20130927
  13. PERTUZUMAB [Concomitant]
     Indication: HER-2 POSITIVE BREAST CANCER
     Dosage: UNK; TOTAL
     Route: 042
     Dates: start: 20130926, end: 20130926
  14. PERTUZUMAB [Concomitant]
     Dosage: 420 MG, 1/ THREE WEEKS
     Route: 041
  15. PIRITON [Concomitant]
     Indication: PRODUCT USED FOR UNKNOWN INDICATION
     Dosage: 10 MG, DAILY
     Route: 065
     Dates: start: 20131004
  16. SELENIUM [Concomitant]
     Indication: PRODUCT USED FOR UNKNOWN INDICATION
     Dosage: 200 MG, DAILY
     Route: 065
     Dates: start: 20100101
  17. SYMBICORT [Concomitant]
     Indication: PRODUCT USED FOR UNKNOWN INDICATION
     Dosage: 2 PUFFS TWICE A DAY
     Route: 065
     Dates: start: 20130914
  18. TRASTUZUMAB [Concomitant]
     Indication: HER-2 POSITIVE BREAST CANCER
     Dosage: 648 MG, 1/ THREE WEEKS
     Route: 041
  19. TRASTUZUMAB [Concomitant]
     Dosage: UNK; TOTAL
     Route: 041
     Dates: start: 20130926, end: 20130926
  20. VENTOLIN                           /00139501/ [Concomitant]
     Indication: PRODUCT USED FOR UNKNOWN INDICATION
     Dosage: UNK
     Route: 055
     Dates: start: 20130914, end: 20131004
  21. VITAMIN C                          /00008001/ [Concomitant]
     Indication: PRODUCT USED FOR UNKNOWN INDICATION
     Dosage: 1000 MG, DAILY
     Route: 065
     Dates: start: 20100101

REACTIONS (1)
  - Anaemia [Recovered/Resolved]
